FAERS Safety Report 9464531 (Version 2)
Quarter: 2013Q3

REPORT INFORMATION
  Report Type: Report from Study
  Country: DE (occurrence: DE)
  Receive Date: 20130819
  Receipt Date: 20130819
  Transmission Date: 20140515
  Serious: Yes (Other)
  Sender: FDA-Public Use
  Company Number: DE-TEVA-413171GER

PATIENT
  Sex: Female

DRUGS (2)
  1. COPAXONE [Suspect]
     Indication: MULTIPLE SCLEROSIS
     Dosage: 20 MILLIGRAM DAILY;
     Route: 058
     Dates: start: 20020101
  2. ZOLOFT [Concomitant]
     Indication: DEPRESSION
     Dosage: IRREGULAR

REACTIONS (4)
  - Multiple sclerosis relapse [Recovering/Resolving]
  - Nuclear magnetic resonance imaging abnormal [Unknown]
  - Vitreous detachment [Unknown]
  - Multiple sclerosis [Recovering/Resolving]
